FAERS Safety Report 23250864 (Version 1)
Quarter: 2023Q4

REPORT INFORMATION
  Report Type: Report from Study
  Country: US (occurrence: US)
  Receive Date: 20231201
  Receipt Date: 20231201
  Transmission Date: 20240110
  Serious: Yes (Hospitalization)
  Sender: FDA-Public Use
  Company Number: US-BAYER-2023A163105

PATIENT
  Age: 76 Year
  Sex: Female

DRUGS (1)
  1. STIVARGA [Suspect]
     Active Substance: REGORAFENIB
     Indication: Colorectal cancer metastatic
     Dosage: 160 MG, QD, 21 DAYS ON, 7 DAYS OFF

REACTIONS (4)
  - Fall [Unknown]
  - Lower limb fracture [Unknown]
  - Unevaluable event [Unknown]
  - Weight decreased [Unknown]
